FAERS Safety Report 6955135-6 (Version None)
Quarter: 2010Q3

REPORT INFORMATION
  Report Type: 
  Country: None (occurrence: None)
  Receive Date: 20100826
  Receipt Date: 20100811
  Transmission Date: 20110219
  Serious: Yes (Hospitalization)
  Sender: FDA-Public Use
  Company Number: 1000015775

PATIENT
  Age: 58 Year
  Sex: Female

DRUGS (1)
  1. ESCITALOPRAM [Suspect]
     Indication: DEPRESSION
     Dosage: ORAL
     Route: 048
     Dates: end: 20100626

REACTIONS (5)
  - CYTOLYTIC HEPATITIS [None]
  - HERPES SIMPLEX SEROLOGY POSITIVE [None]
  - HYPERTHERMIA [None]
  - SMOOTH MUSCLE ANTIBODY POSITIVE [None]
  - WEIGHT DECREASED [None]
